FAERS Safety Report 8788944 (Version 2)
Quarter: 2012Q4

REPORT INFORMATION
  Report Type: 
  Country: US (occurrence: US)
  Receive Date: 20120915
  Receipt Date: 20121214
  Transmission Date: 20130627
  Serious: No
  Sender: FDA-Public Use
  Company Number: US-009507513-1209USA005127

PATIENT
  Sex: Male

DRUGS (6)
  1. VICTRELIS [Suspect]
     Indication: HEPATITIS C
     Dosage: UNK UNK, tid
     Route: 048
     Dates: start: 20120626
  2. VICTRELIS [Suspect]
     Dosage: 800 mg, UNK
     Route: 048
     Dates: start: 201207
  3. PEGASYS [Concomitant]
     Dosage: UNK
  4. RIBAPAK [Concomitant]
     Dosage: UNK
  5. NEUMEGA [Concomitant]
     Dosage: UNK
  6. OXYCODONE [Concomitant]
     Dosage: UNK

REACTIONS (2)
  - Abdominal pain upper [Not Recovered/Not Resolved]
  - Somnolence [Not Recovered/Not Resolved]
